FAERS Safety Report 4381325-5 (Version None)
Quarter: 2004Q2

REPORT INFORMATION
  Report Type: 
  Country: None (occurrence: None)
  Receive Date: 20040616
  Receipt Date: 20040604
  Transmission Date: 20050107
  Serious: Yes (Hospitalization, Other)
  Sender: FDA-Public Use
  Company Number: US-JNJFOC-20040505583

PATIENT
  Age: 66 Year
  Sex: Male

DRUGS (8)
  1. DURAGESIC [Suspect]
     Indication: PAIN
     Dosage: 100 UG/HR, 1 IN 72 HOUR, TRANSDERMAL
     Route: 062
     Dates: start: 20000101, end: 20040501
  2. LORTAB [Suspect]
     Indication: PAIN
     Dosage: , 3 IN 1 DAY, ORAL
     Route: 048
  3. AMITRIPTYLINE HCL [Concomitant]
  4. ZESRIL (LISINOPRIL) [Concomitant]
  5. PAXIL [Concomitant]
  6. PAXIL [Concomitant]
  7. NEURONTIN [Concomitant]
  8. ACETYLSALICYLIC ACID SRT [Concomitant]

REACTIONS (3)
  - COMA [None]
  - PHARMACEUTICAL PRODUCT COMPLAINT [None]
  - TRANSIENT ISCHAEMIC ATTACK [None]
